FAERS Safety Report 4899771-X (Version None)
Quarter: 2006Q1

REPORT INFORMATION
  Report Type: 
  Country: None (occurrence: None)
  Receive Date: 20060118
  Receipt Date: 20050519
  Transmission Date: 20060701
  Serious: No
  Sender: FDA-Public Use
  Company Number: 2005000949

PATIENT
  Age: 88 Year
  Sex: Male
  Weight: 62.5964 kg

DRUGS (10)
  1. TARCEVA [Suspect]
     Indication: NON-SMALL CELL LUNG CANCER
     Dosage: 150 MG (QD), ORAL
     Route: 048
     Dates: start: 20050501, end: 20050617
  2. DIGOXIN [Concomitant]
  3. LASIX [Concomitant]
  4. POTASSIUM (POTASSIUM) [Concomitant]
  5. IMDUR [Concomitant]
  6. ZOLOFT [Concomitant]
  7. TOPROL-XL [Concomitant]
  8. COUMADIN [Concomitant]
  9. FOLIC ACID [Concomitant]
  10. ZOCOR [Concomitant]

REACTIONS (5)
  - ANAEMIA [None]
  - DYSPNOEA [None]
  - HEART RATE INCREASED [None]
  - OXYGEN SATURATION DECREASED [None]
  - RASH [None]
